FAERS Safety Report 16607813 (Version 1)
Quarter: 2019Q3

REPORT INFORMATION
  Report Type: Spontaneous
  Country: CA (occurrence: CA)
  Receive Date: 20190722
  Receipt Date: 20190722
  Transmission Date: 20191004
  Serious: Yes (Other)
  Sender: FDA-Public Use
  Company Number: CA-ACCORD-139280

PATIENT
  Age: 73 Year
  Sex: Female

DRUGS (1)
  1. GEMCITABINE/GEMCITABINE HYDROCHLORIDE [Suspect]
     Active Substance: GEMCITABINE\GEMCITABINE HYDROCHLORIDE
     Indication: METASTASES TO LYMPH NODES

REACTIONS (6)
  - Apoptosis [Recovered/Resolved]
  - Off label use [Unknown]
  - Subacute cutaneous lupus erythematosus [Recovered/Resolved]
  - Systemic lupus erythematosus rash [Recovered/Resolved]
  - Toxicity to various agents [Recovered/Resolved]
  - Drug eruption [Recovered/Resolved]
